FAERS Safety Report 9366020 (Version 1)
Quarter: 2013Q2

REPORT INFORMATION
  Report Type: Spontaneous
  Country: US (occurrence: US)
  Receive Date: 20130625
  Receipt Date: 20130625
  Transmission Date: 20140414
  Serious: No
  Sender: FDA-Public Use
  Company Number: US-FOUGERA-2013FO000001

PATIENT
  Age: 54 Year
  Sex: Female
  Weight: 77.18 kg

DRUGS (2)
  1. METRONIDAZOLE [Suspect]
     Indication: ROSACEA
     Route: 061
     Dates: start: 20121227, end: 20121227
  2. DOXYCYCLINE [Concomitant]
     Indication: PRODUCT USED FOR UNKNOWN INDICATION

REACTIONS (2)
  - Application site urticaria [Recovering/Resolving]
  - Application site exfoliation [Not Recovered/Not Resolved]
